FAERS Safety Report 7324427-3 (Version None)
Quarter: 2011Q1

REPORT INFORMATION
  Report Type: 
  Country: None (occurrence: None)
  Receive Date: 20110301
  Receipt Date: 20110224
  Transmission Date: 20110831
  Serious: Yes (Other)
  Sender: FDA-Public Use
  Company Number: US-PFIZER INC-2011041236

PATIENT
  Sex: Female
  Weight: 65.76 kg

DRUGS (1)
  1. ADVIL ALLERGY SINUS [Suspect]
     Indication: SINUSITIS
     Dosage: UNK
     Route: 048
     Dates: start: 20110213

REACTIONS (2)
  - OEDEMA PERIPHERAL [None]
  - PAIN [None]
